FAERS Safety Report 8262316-0 (Version None)
Quarter: 2012Q2

REPORT INFORMATION
  Report Type: 
  Country: None (occurrence: None)
  Receive Date: 20120405
  Receipt Date: 20120323
  Transmission Date: 20120825
  Serious: Yes (Other)
  Sender: FDA-Public Use
  Company Number: TW-MYLANLABS-2012S1006606

PATIENT
  Age: 27 Year
  Sex: Female

DRUGS (4)
  1. ZOLPIDEM [Suspect]
     Dosage: PRESCRIBED 10-20 MG/DAY
     Route: 065
  2. ZOLPIDEM [Suspect]
     Indication: INSOMNIA
     Dosage: SUPRATHERAPEUTIC DOSE OF ROUGHLY 100-200 MG/DAY
     Route: 065
  3. PREDNISOLONE [Concomitant]
     Dosage: 5-10 MG/DAY
     Route: 048
  4. METHYLPREDNISOLONE [Concomitant]
     Dosage: 750MG DAILY
     Route: 042

REACTIONS (5)
  - DRUG WITHDRAWAL SYNDROME [None]
  - TREMOR [None]
  - MUSCLE RIGIDITY [None]
  - DRUG ABUSE [None]
  - CATATONIA [None]
